FAERS Safety Report 6369512-8 (Version None)
Quarter: 2009Q3

REPORT INFORMATION
  Report Type: 
  Country: None (occurrence: None)
  Receive Date: 20090917
  Receipt Date: 20090902
  Transmission Date: 20100115
  Serious: Yes (Hospitalization)
  Sender: FDA-Public Use
  Company Number: 2009002034

PATIENT
  Age: 56 Year
  Sex: Male
  Weight: 107.6 kg

DRUGS (2)
  1. ERLOTINIB HYDROCHLORIDE [Suspect]
     Indication: RECTAL CANCER
     Dosage: 100 MG, DAYS 8-21 OF CYCLE 1, 1-21 ON SUBSEQUENT), ORAL
     Route: 048
     Dates: start: 20090417
  2. CETUXIMAB (CETUXIMAB) (INJECTION FOR INFUSION) [Suspect]
     Indication: RECTAL CANCER
     Dosage: 250 MG/KG/IV OVER 60-120 MIN WEEKLY), INTRAVENOUS
     Route: 042

REACTIONS (17)
  - BLOOD MAGNESIUM DECREASED [None]
  - BLOOD POTASSIUM DECREASED [None]
  - CELLULITIS [None]
  - DERMATITIS ACNEIFORM [None]
  - DRUG ERUPTION [None]
  - ECZEMA ASTEATOTIC [None]
  - HAEMATOCRIT DECREASED [None]
  - INAPPROPRIATE SCHEDULE OF DRUG ADMINISTRATION [None]
  - INTERNATIONAL NORMALISED RATIO INCREASED [None]
  - OEDEMA PERIPHERAL [None]
  - PROTHROMBIN TIME PROLONGED [None]
  - PYREXIA [None]
  - SUPERINFECTION [None]
  - THERAPEUTIC AGENT TOXICITY [None]
  - TREATMENT NONCOMPLIANCE [None]
  - URINARY TRACT INFECTION [None]
  - UROGENITAL HAEMORRHAGE [None]
